FAERS Safety Report 7357017-7 (Version None)
Quarter: 2011Q1

REPORT INFORMATION
  Report Type: 
  Country: None (occurrence: None)
  Receive Date: 20110310
  Receipt Date: 20110310
  Transmission Date: 20110831
  Serious: Yes (Other)
  Sender: FDA-Public Use
  Company Number: None

PATIENT
  Age: 3 Month
  Sex: Female

DRUGS (1)
  1. CHLORAPREP [Suspect]

REACTIONS (4)
  - APPLICATION SITE REACTION [None]
  - BLISTER [None]
  - ERYTHEMA [None]
  - SKIN DISORDER [None]
